FAERS Safety Report 21472609 (Version 1)
Quarter: 2022Q4

REPORT INFORMATION
  Report Type: Spontaneous
  Country: US (occurrence: US)
  Receive Date: 20221018
  Receipt Date: 20221018
  Transmission Date: 20230113
  Serious: No
  Sender: FDA-Public Use
  Company Number: US-SANOFI-01316721

PATIENT
  Sex: Male

DRUGS (1)
  1. ELITEK [Suspect]
     Active Substance: RASBURICASE

REACTIONS (1)
  - Product prescribing issue [Unknown]
